FAERS Safety Report 25182485 (Version 3)
Quarter: 2025Q3

REPORT INFORMATION
  Report Type: Report from Study
  Country: BR (occurrence: BR)
  Receive Date: 20250410
  Receipt Date: 20250908
  Transmission Date: 20251020
  Serious: Yes (Hospitalization)
  Sender: TAKEDA
  Company Number: BR-TAKEDA-2025TUS013671

PATIENT
  Sex: Male

DRUGS (2)
  1. PONATINIB [Suspect]
     Active Substance: PONATINIB
     Indication: Chronic myeloid leukaemia
  2. PONATINIB [Suspect]
     Active Substance: PONATINIB

REACTIONS (12)
  - Urinary tract infection [Unknown]
  - Full blood count abnormal [Unknown]
  - Somnolence [Unknown]
  - Product supply issue [Unknown]
  - Product dose omission issue [Unknown]
  - Dark circles under eyes [Not Recovered/Not Resolved]
  - White blood cell disorder [Not Recovered/Not Resolved]
  - Mouth haemorrhage [Unknown]
  - Dizziness [Not Recovered/Not Resolved]
  - Dry eye [Unknown]
  - Contusion [Unknown]
  - Abdominal pain [Unknown]
